APPROVED DRUG PRODUCT: LEVONORGESTREL AND ETHINYL ESTRADIOL
Active Ingredient: ETHINYL ESTRADIOL; LEVONORGESTREL
Strength: 0.02MG;0.1MG
Dosage Form/Route: TABLET;ORAL-28
Application: A075862 | Product #002
Applicant: BARR LABORATORIES INC
Approved: Apr 29, 2003 | RLD: No | RS: No | Type: DISCN